FAERS Safety Report 20795019 (Version 1)
Quarter: 2022Q2

REPORT INFORMATION
  Report Type: Spontaneous
  Country: US (occurrence: None)
  Receive Date: 20220505
  Receipt Date: 20220505
  Transmission Date: 20220720
  Serious: Yes (Other)
  Sender: FDA-Public Use
  Company Number: None

PATIENT
  Age: 65 Year
  Sex: Female
  Weight: 81 kg

DRUGS (1)
  1. ISOVUE 370 [Suspect]
     Active Substance: IOPAMIDOL
     Indication: Computerised tomogram
     Dosage: FREQUENCY : AS NEEDED;?
     Route: 042

REACTIONS (3)
  - Urticaria [None]
  - Sneezing [None]
  - Contrast media reaction [None]

NARRATIVE: CASE EVENT DATE: 20220504
